FAERS Safety Report 10239855 (Version 3)
Quarter: 2015Q2

REPORT INFORMATION
  Report Type: Report from Study
  Country: US (occurrence: US)
  Receive Date: 20140616
  Receipt Date: 20150415
  Transmission Date: 20150821
  Serious: Yes (Other)
  Sender: FDA-Public Use
  Company Number: US-BAXTER-2014BAX030658

PATIENT
  Age: 29 Year
  Sex: Female
  Weight: 79 kg

DRUGS (3)
  1. GAMMAGARD LIQUID [Suspect]
     Active Substance: HUMAN IMMUNOGLOBULIN G
     Dosage: 4 SITES
     Route: 058
     Dates: start: 201405
  2. GAMMAGARD LIQUID [Suspect]
     Active Substance: HUMAN IMMUNOGLOBULIN G
     Indication: IMMUNODEFICIENCY COMMON VARIABLE
     Dosage: 4 SITES
     Route: 058
     Dates: start: 20130711, end: 201405
  3. CLINDAMYCIN [Suspect]
     Active Substance: CLINDAMYCIN\CLINDAMYCIN PHOSPHATE
     Indication: PRODUCT USED FOR UNKNOWN INDICATION
     Route: 065

REACTIONS (15)
  - Nasal turbinate abnormality [Not Recovered/Not Resolved]
  - Barrett^s oesophagus [Not Recovered/Not Resolved]
  - Protein urine present [Unknown]
  - Gastroenteritis viral [Recovered/Resolved]
  - Tonsillar disorder [Not Recovered/Not Resolved]
  - Adenoidal disorder [Not Recovered/Not Resolved]
  - Dysuria [Unknown]
  - Nausea [Recovered/Resolved]
  - Candida infection [Recovered/Resolved]
  - Diarrhoea [Not Recovered/Not Resolved]
  - Streptococcus test positive [Unknown]
  - Ear pain [Not Recovered/Not Resolved]
  - Vomiting [Recovered/Resolved]
  - Autoimmune thyroiditis [Not Recovered/Not Resolved]
  - Middle ear effusion [Not Recovered/Not Resolved]

NARRATIVE: CASE EVENT DATE: 201401
